FAERS Safety Report 21242459 (Version 2)
Quarter: 2022Q3

REPORT INFORMATION
  Report Type: Spontaneous
  Country: US (occurrence: US)
  Receive Date: 20220823
  Receipt Date: 20220920
  Transmission Date: 20221026
  Serious: Yes (Other)
  Sender: FDA-Public Use
  Company Number: US-NOVARTISTESTPH-NVSC2022US186552

PATIENT
  Sex: Male
  Weight: 89 kg

DRUGS (1)
  1. KYMRIAH [Suspect]
     Active Substance: TISAGENLECLEUCEL
     Indication: Acute lymphocytic leukaemia refractory
     Dosage: 13 ML, ONCE/SINGLE (1.5E8 CAR-POSITIVE VIABLE T-CELLS)
     Route: 042

REACTIONS (2)
  - B-cell aplasia [Unknown]
  - Acute lymphocytic leukaemia recurrent [Unknown]
